FAERS Safety Report 20005139 (Version 1)
Quarter: 2021Q4

REPORT INFORMATION
  Report Type: Report from Study
  Country: None (occurrence: US)
  Receive Date: 20211027
  Receipt Date: 20211027
  Transmission Date: 20220303
  Serious: Yes (Death)
  Sender: FDA-Public Use
  Company Number: US-ABBVIE-21P-163-4115272-00

PATIENT
  Age: 87 Year
  Sex: Female
  Weight: 77.18 kg

DRUGS (1)
  1. HUMIRA [Suspect]
     Active Substance: ADALIMUMAB
     Indication: Psoriasis
     Route: 058
     Dates: start: 20110125, end: 20160501

REACTIONS (1)
  - Non-Hodgkin^s lymphoma recurrent [Fatal]

NARRATIVE: CASE EVENT DATE: 20200201
